FAERS Safety Report 12210700 (Version 1)
Quarter: 2016Q1

REPORT INFORMATION
  Report Type: Spontaneous
  Country: GB (occurrence: GB)
  Receive Date: 20160325
  Receipt Date: 20160325
  Transmission Date: 20160526
  Serious: Yes (Hospitalization)
  Sender: FDA-Public Use
  Company Number: GB-TEVA-645321ACC

PATIENT
  Age: 42 Year
  Sex: Male
  Weight: 45 kg

DRUGS (6)
  1. WARFARIN SODIUM. [Suspect]
     Active Substance: WARFARIN SODIUM
     Indication: AORTIC VALVE REPLACEMENT
     Dosage: VARIABLE - 4MG OD ON ADMISSION
     Route: 048
     Dates: start: 1989, end: 20150730
  2. RANITIDINE [Concomitant]
     Active Substance: RANITIDINE\RANITIDINE HYDROCHLORIDE
  3. FERROUS SULFATE [Concomitant]
     Active Substance: FERROUS SULFATE\FERROUS SULFATE, DRIED
  4. THIAMINE. [Concomitant]
     Active Substance: THIAMINE
  5. BUMETANIDE. [Concomitant]
     Active Substance: BUMETANIDE
  6. VITAMIN B COMPLEX STRONG [Concomitant]

REACTIONS (1)
  - Calciphylaxis [Not Recovered/Not Resolved]

NARRATIVE: CASE EVENT DATE: 201505
